FAERS Safety Report 16240035 (Version 2)
Quarter: 2019Q3

REPORT INFORMATION
  Report Type: Spontaneous
  Country: US (occurrence: US)
  Receive Date: 20190425
  Receipt Date: 20190722
  Transmission Date: 20191004
  Serious: No
  Sender: FDA-Public Use
  Company Number: US-ALLERGAN-1851849US

PATIENT
  Age: 9 Year
  Sex: Female

DRUGS (2)
  1. TRIPTORELIN PAMOATE - BP [Suspect]
     Active Substance: TRIPTORELIN PAMOATE
     Dosage: UNK, SINGLE
     Route: 030
     Dates: start: 20180926, end: 20180926
  2. TRIPTORELIN PAMOATE - BP [Suspect]
     Active Substance: TRIPTORELIN PAMOATE
     Indication: PRODUCT USED FOR UNKNOWN INDICATION
     Dosage: UNK, SINGLE
     Route: 030
     Dates: start: 20180929, end: 20180929

REACTIONS (5)
  - Off label use [Unknown]
  - Dyspepsia [Unknown]
  - Hot flush [Recovered/Resolved]
  - Sinus congestion [Unknown]
  - Cough [Unknown]

NARRATIVE: CASE EVENT DATE: 2018
